FAERS Safety Report 5613303-X (Version None)
Quarter: 2008Q1

REPORT INFORMATION
  Report Type: 
  Country: None (occurrence: None)
  Receive Date: 20080130
  Receipt Date: 20080115
  Transmission Date: 20080703
  Serious: Yes (Hospitalization)
  Sender: FDA-Public Use
  Company Number: DSM-2008-00084

PATIENT
  Age: 67 Year
  Sex: Female

DRUGS (2)
  1. VOTUM (OLEMSARTAN MEDOXOMIL) (40 MILLIGRAM, TABLET) (OLMESARTAN MEDOXO [Suspect]
     Indication: HYPERTENSION
     Dosage: 40 MG (40 MG,1 IN 1 D), ORAL
     Route: 048
     Dates: start: 20071205, end: 20071209
  2. HCT HEXAL (HYDROCHLOROTHIAZIDE)(TABLET)-(HYDROCHLOROTHIAZIDE) [Concomitant]

REACTIONS (2)
  - BLOOD PRESSURE INCREASED [None]
  - HEADACHE [None]
